FAERS Safety Report 10331372 (Version 2)
Quarter: 2014Q3

REPORT INFORMATION
  Report Type: Spontaneous
  Country: US (occurrence: US)
  Receive Date: 20140722
  Receipt Date: 20140722
  Transmission Date: 20150326
  Serious: Yes (Hospitalization)
  Sender: FDA-Public Use
  Company Number: US-SA-2014SA076745

PATIENT
  Age: 24 Year
  Sex: Female
  Weight: 110.2 kg

DRUGS (9)
  1. LEVOTHYROXINE [Concomitant]
     Active Substance: LEVOTHYROXINE
     Indication: POST PROCEDURAL HYPOTHYROIDISM
  2. ADVIL [Concomitant]
     Active Substance: IBUPROFEN
     Indication: HEADACHE
  3. SYNTHROID [Concomitant]
     Active Substance: LEVOTHYROXINE SODIUM
     Route: 048
  4. EXCEDRIN ASPIRIN FREE [Concomitant]
     Dosage: 500-65 MG
  5. ALEVE [Concomitant]
     Active Substance: NAPROXEN SODIUM
  6. THYROGEN [Suspect]
     Active Substance: THYROTROPIN ALFA
     Indication: THERAPEUTIC PROCEDURE
     Route: 030
     Dates: start: 20140529, end: 20140530
  7. IBUPROFEN. [Concomitant]
     Active Substance: IBUPROFEN
  8. TYLENOL [Concomitant]
     Active Substance: ACETAMINOPHEN
     Route: 048
  9. DEXTROMETHORPHAN HYDROBROMIDE/GUAIFENESIN [Concomitant]
     Route: 048

REACTIONS (20)
  - Influenza like illness [Unknown]
  - Chest pain [Unknown]
  - Feeling hot [Unknown]
  - Nausea [Unknown]
  - Headache [Recovered/Resolved]
  - Pyrexia [Recovered/Resolved]
  - Dizziness [Unknown]
  - Fibrin D dimer [Recovering/Resolving]
  - Menstrual disorder [Recovered/Resolved]
  - Leukocytosis [Recovering/Resolving]
  - Pain in extremity [Recovering/Resolving]
  - Myalgia [Recovering/Resolving]
  - Back pain [Recovering/Resolving]
  - Mutism [Recovered/Resolved]
  - Sinus tachycardia [Recovering/Resolving]
  - Fatigue [Recovering/Resolving]
  - Oropharyngeal pain [Recovered/Resolved]
  - Vomiting [Unknown]
  - Pain [Recovering/Resolving]
  - Dyspnoea [Recovered/Resolved]

NARRATIVE: CASE EVENT DATE: 2014
